FAERS Safety Report 9393403 (Version 1)
Quarter: 2013Q3

REPORT INFORMATION
  Report Type: Spontaneous
  Country: US (occurrence: None)
  Receive Date: 20130709
  Receipt Date: 20130709
  Transmission Date: 20140515
  Serious: Yes (Other)
  Sender: FDA-Public Use
  Company Number: None

PATIENT
  Age: 58 Year
  Sex: Female
  Weight: 106.6 kg

DRUGS (7)
  1. CELEBREX [Suspect]
     Indication: OSTEOARTHRITIS
     Route: 048
     Dates: start: 20130529, end: 20130604
  2. OXYCODONE [Concomitant]
  3. TRAMADOL [Concomitant]
  4. WARFARIN [Concomitant]
  5. VALSARTAN-HCTZ [Concomitant]
  6. ACIDOPHILUS [Concomitant]
  7. TYLENOL ES [Concomitant]

REACTIONS (4)
  - Oedema peripheral [None]
  - Periorbital oedema [None]
  - Weight increased [None]
  - Dyspnoea [None]
